FAERS Safety Report 19259313 (Version 1)
Quarter: 2021Q2

REPORT INFORMATION
  Report Type: Spontaneous
  Country: TW (occurrence: TW)
  Receive Date: 20210514
  Receipt Date: 20210514
  Transmission Date: 20210717
  Serious: Yes (Life-Threatening, Other)
  Sender: FDA-Public Use
  Company Number: TW-ALLERGAN-2118214US

PATIENT
  Sex: Female

DRUGS (13)
  1. FUCIDIN [FUSIDATE SODIUM] [Suspect]
     Active Substance: FUSIDATE SODIUM
     Indication: CELLULITIS
     Dosage: 500 MG, TID
     Dates: start: 20210403, end: 20210408
  2. OXACILLIN [Suspect]
     Active Substance: OXACILLIN SODIUM
     Indication: CELLULITIS
     Dosage: UNK
     Dates: start: 20210408, end: 20210408
  3. CEFEPIME [Suspect]
     Active Substance: CEFEPIME HYDROCHLORIDE
     Indication: CELLULITIS
     Dosage: UNK
     Dates: start: 20210413, end: 20210419
  4. TAZOCIN [Suspect]
     Active Substance: PIPERACILLIN SODIUM\TAZOBACTAM SODIUM
     Indication: PNEUMONIA
  5. TARGOCID [Suspect]
     Active Substance: TEICOPLANIN
     Indication: CELLULITIS
     Dosage: UNK
     Dates: start: 20210326, end: 20210403
  6. RIFAMPICIN [Suspect]
     Active Substance: RIFAMPIN
     Indication: CELLULITIS
     Dosage: 300 MG, BID
     Dates: start: 20210404, end: 20210408
  7. TIGECYCLINE. [Suspect]
     Active Substance: TIGECYCLINE
     Indication: PNEUMONIA
  8. CEFEPIME [Suspect]
     Active Substance: CEFEPIME HYDROCHLORIDE
     Indication: PNEUMONIA
  9. TAZOCIN [Suspect]
     Active Substance: PIPERACILLIN SODIUM\TAZOBACTAM SODIUM
     Indication: CELLULITIS
     Dosage: 1.5 DF, QID
     Dates: start: 20210408, end: 20210412
  10. CEFTAROLINE FOSAMIL ? BP [Suspect]
     Active Substance: CEFTAROLINE FOSAMIL
     Indication: PNEUMONIA
  11. TIGECYCLINE. [Suspect]
     Active Substance: TIGECYCLINE
     Indication: CELLULITIS
     Dosage: UNK
     Dates: start: 20210413
  12. FUCIDIN [FUSIDATE SODIUM] [Suspect]
     Active Substance: FUSIDATE SODIUM
     Dosage: 2 DF
     Dates: start: 20210408, end: 20210412
  13. CEFTAROLINE FOSAMIL ? BP [Suspect]
     Active Substance: CEFTAROLINE FOSAMIL
     Indication: CELLULITIS
     Dosage: 600 MG, BID
     Route: 042
     Dates: start: 20210412, end: 20210413

REACTIONS (13)
  - Dermatitis [Recovered/Resolved]
  - Drug eruption [Recovered/Resolved]
  - Nausea [Recovered/Resolved]
  - Alanine aminotransferase increased [Unknown]
  - Aspartate aminotransferase increased [Unknown]
  - Presyncope [Recovered/Resolved]
  - Syncope [Recovered/Resolved]
  - Hyperhidrosis [Recovered/Resolved]
  - Rash pruritic [Recovered/Resolved]
  - Acute respiratory distress syndrome [Recovered/Resolved]
  - Vomiting [Recovered/Resolved]
  - Fatigue [Recovered/Resolved]
  - Dizziness [Recovered/Resolved]

NARRATIVE: CASE EVENT DATE: 202104
